FAERS Safety Report 12419624 (Version 2)
Quarter: 2016Q2

REPORT INFORMATION
  Report Type: Spontaneous
  Country: GB (occurrence: GB)
  Receive Date: 20160531
  Receipt Date: 20160607
  Transmission Date: 20160815
  Serious: Yes (Death, Other)
  Sender: FDA-Public Use
  Company Number: GB-IPSEN BIOPHARMACEUTICALS, INC.-2016-04615

PATIENT
  Age: 89 Year
  Sex: Female

DRUGS (2)
  1. BOTULINUM TOXIN TYPE A NOS [Suspect]
     Active Substance: BOTULINUM TOXIN TYPE A
     Indication: OESOPHAGEAL ACHALASIA
     Dosage: 100 UNITS
     Route: 065
  2. BOTULINUM TOXIN TYPE A NOS [Suspect]
     Active Substance: BOTULINUM TOXIN TYPE A
     Indication: PRODUCT USE ISSUE

REACTIONS (4)
  - Cardiac pseudoaneurysm [Fatal]
  - Mediastinitis [Unknown]
  - Haematoma [Fatal]
  - Cardiac arrest [Fatal]
